FAERS Safety Report 5007051-7 (Version None)
Quarter: 2006Q2

REPORT INFORMATION
  Report Type: 
  Country: None (occurrence: None)
  Receive Date: 20060517
  Receipt Date: 20060508
  Transmission Date: 20061013
  Serious: Yes (Death, Life-Threatening)
  Sender: FDA-Public Use
  Company Number: 219378

PATIENT
  Sex: 0

DRUGS (6)
  1. RITUXAN [Suspect]
     Indication: B-CELL LYMPHOMA
     Dosage: 470 MG, INTRAVENOUS; SEE IMAGE
     Route: 042
     Dates: start: 20051012, end: 20051013
  2. PREDNISOLONE SODIUM PHOSPHATE [Concomitant]
  3. SOLU-MEDROL [Concomitant]
  4. MAXIPIME [Concomitant]
  5. POLARAMINE [Concomitant]
  6. SAXIZON (HYDROCORTISONE SODIUM SUCCINATE) [Concomitant]

REACTIONS (11)
  - BRAIN OEDEMA [None]
  - ENCEPHALITIS [None]
  - ENCEPHALITIS VIRAL [None]
  - ENCEPHALOPATHY [None]
  - HAEMOGLOBIN DECREASED [None]
  - LARGE INTESTINAL HAEMORRHAGE [None]
  - LYMPHOCYTE PERCENTAGE DECREASED [None]
  - NEUTROPHIL PERCENTAGE INCREASED [None]
  - PLATELET COUNT DECREASED [None]
  - PNEUMONIA [None]
  - WHITE BLOOD CELL COUNT INCREASED [None]
